FAERS Safety Report 18288190 (Version 1)
Quarter: 2020Q3

REPORT INFORMATION
  Report Type: Spontaneous
  Country: US (occurrence: US)
  Receive Date: 20200918
  Receipt Date: 20200918
  Transmission Date: 20201103
  Serious: Yes (Hospitalization)
  Sender: FDA-Public Use
  Company Number: None

PATIENT
  Age: 52 Year
  Sex: Female

DRUGS (1)
  1. ACTEMRA [Suspect]
     Active Substance: TOCILIZUMAB
     Indication: RHEUMATOID ARTHRITIS
     Dosage: OTHER DOSE:162/0.9 MG/ML;?
     Route: 058
     Dates: start: 20200114

REACTIONS (2)
  - Surgery [None]
  - Product dose omission issue [None]

NARRATIVE: CASE EVENT DATE: 20200917
